FAERS Safety Report 13415524 (Version 2)
Quarter: 2017Q2

REPORT INFORMATION
  Report Type: Spontaneous
  Country: IT (occurrence: IT)
  Receive Date: 20170406
  Receipt Date: 20170412
  Transmission Date: 20170830
  Serious: Yes (Other)
  Sender: FDA-Public Use
  Company Number: IT-SA-2017SA055230

PATIENT
  Sex: Male

DRUGS (6)
  1. CLOTIAPINE [Concomitant]
     Active Substance: CLOTHIAPINE
  2. DEPAKIN CHRONO [Concomitant]
     Active Substance: VALPROIC ACID
     Dosage: 300 MG IN THE MORNING; 600 MG IN THE EVENING
  3. RIVOTRIL [Concomitant]
     Active Substance: CLONAZEPAM
  4. AUBAGIO [Suspect]
     Active Substance: TERIFLUNOMIDE
     Route: 065
  5. TAVOR (LORAZEPAM) [Concomitant]
     Active Substance: LORAZEPAM
  6. ABILIFY [Concomitant]
     Active Substance: ARIPIPRAZOLE
     Dates: start: 20170328

REACTIONS (3)
  - Condition aggravated [Unknown]
  - Off label use [Unknown]
  - Psychiatric symptom [Unknown]
